FAERS Safety Report 6622726-1 (Version None)
Quarter: 2010Q1

REPORT INFORMATION
  Report Type: 
  Country: None (occurrence: None)
  Receive Date: 20100310
  Receipt Date: 20100301
  Transmission Date: 20100710
  Serious: Yes (Hospitalization, Other)
  Sender: FDA-Public Use
  Company Number: US-BAYER-200834546NA

PATIENT
  Age: 20 Year
  Sex: Female

DRUGS (2)
  1. MIRENA [Suspect]
     Indication: CONTRACEPTION
     Dosage: DAILY CONTINUOUS
     Route: 015
     Dates: start: 20080801, end: 20080101
  2. ZOLOFT [Concomitant]
     Indication: POSTPARTUM DEPRESSION

REACTIONS (1)
  - CONVULSION [None]
